FAERS Safety Report 14482109 (Version 3)
Quarter: 2018Q2

REPORT INFORMATION
  Report Type: Spontaneous
  Country: US (occurrence: US)
  Receive Date: 20180202
  Receipt Date: 20180403
  Transmission Date: 20180711
  Serious: Yes (Hospitalization)
  Sender: FDA-Public Use
  Company Number: US-SA-2018SA020467

PATIENT
  Age: 50 Year
  Sex: Male
  Weight: 62.59 kg

DRUGS (10)
  1. FABRAZYME [Suspect]
     Active Substance: AGALSIDASE BETA
     Indication: FABRY^S DISEASE
     Route: 041
     Dates: start: 20160229
  2. RENVELA [Suspect]
     Active Substance: SEVELAMER CARBONATE
     Route: 048
     Dates: start: 20170404
  3. PREDNISONE. [Concomitant]
     Active Substance: PREDNISONE
     Route: 048
     Dates: start: 20170110
  4. VITAMIN B NOS/ASCORBIC ACID [Concomitant]
     Route: 048
     Dates: start: 20170110
  5. VITAMIN D2 [Concomitant]
     Active Substance: ERGOCALCIFEROL
     Dosage: EVERY MONDAY
     Route: 048
     Dates: start: 20171211
  6. AMLODIPINE [Concomitant]
     Active Substance: AMLODIPINE BESYLATE
     Route: 048
     Dates: start: 20171114
  7. FABRAZYME [Suspect]
     Active Substance: AGALSIDASE BETA
     Indication: FABRY^S DISEASE
     Route: 041
     Dates: start: 20160229
  8. METHIMAZOLE. [Concomitant]
     Active Substance: METHIMAZOLE
     Route: 048
     Dates: start: 20171211
  9. METOPROLOL. [Concomitant]
     Active Substance: METOPROLOL
     Route: 048
     Dates: start: 20171211
  10. ACETAMINOPHEN. [Concomitant]
     Active Substance: ACETAMINOPHEN
     Route: 048
     Dates: start: 20170207

REACTIONS (2)
  - Catheter placement [Unknown]
  - Pleural effusion [Unknown]

NARRATIVE: CASE EVENT DATE: 20180313
